FAERS Safety Report 20686777 (Version 1)
Quarter: 2022Q2

REPORT INFORMATION
  Report Type: Spontaneous
  Country: US (occurrence: US)
  Receive Date: 20220407
  Receipt Date: 20220407
  Transmission Date: 20220721
  Serious: No
  Sender: FDA-Public Use
  Company Number: US-SA-SAC20220405001743

PATIENT
  Age: 31 Year
  Sex: Female

DRUGS (7)
  1. DUPIXENT [Suspect]
     Active Substance: DUPILUMAB
     Indication: Dermatitis atopic
     Dosage: 1 DF, QOW
     Route: 058
     Dates: start: 20180227
  2. CYCLOSPORINE [Concomitant]
     Active Substance: CYCLOSPORINE
  3. CLONAZEPAM [Concomitant]
     Active Substance: CLONAZEPAM
  4. BUPROPION [Concomitant]
     Active Substance: BUPROPION
  5. DULOXETINE [Concomitant]
     Active Substance: DULOXETINE
  6. ACYCLOVIR [Concomitant]
     Active Substance: ACYCLOVIR
  7. ACRIVASTINE [Concomitant]
     Active Substance: ACRIVASTINE

REACTIONS (3)
  - Stress [Recovering/Resolving]
  - Condition aggravated [Recovering/Resolving]
  - Dermatitis atopic [Recovering/Resolving]

NARRATIVE: CASE EVENT DATE: 20220331
